FAERS Safety Report 24310623 (Version 1)
Quarter: 2024Q3

REPORT INFORMATION
  Report Type: Spontaneous
  Country: US (occurrence: US)
  Receive Date: 20240912
  Receipt Date: 20240912
  Transmission Date: 20241017
  Serious: Yes (Other)
  Sender: HETERO
  Company Number: US-HETERO-HET2024US03005

PATIENT
  Age: 63 Year
  Sex: Female

DRUGS (1)
  1. DIMETHYL FUMARATE [Suspect]
     Active Substance: DIMETHYL FUMARATE
     Indication: Relapsing-remitting multiple sclerosis
     Dosage: UNK
     Route: 065
     Dates: start: 201407, end: 202101

REACTIONS (3)
  - Multiple sclerosis relapse [Unknown]
  - Product dose omission issue [Unknown]
  - Therapy cessation [Unknown]
